FAERS Safety Report 4521811-8 (Version None)
Quarter: 2004Q4

REPORT INFORMATION
  Report Type: 
  Country: None (occurrence: None)
  Receive Date: 20041209
  Receipt Date: 20040325
  Transmission Date: 20050328
  Serious: Yes (Hospitalization)
  Sender: FDA-Public Use
  Company Number: 200411265FR

PATIENT
  Age: 75 Year
  Sex: Female

DRUGS (3)
  1. OFLOCET [Suspect]
     Indication: DIARRHOEA
     Route: 048
     Dates: start: 20031230, end: 20040102
  2. FLAGYL [Suspect]
     Indication: DIARRHOEA
     Route: 048
     Dates: start: 20031218, end: 20040102
  3. DIHYDROERGOTAMINE MESYLATE [Suspect]
     Indication: PINEALOMA
     Route: 048
     Dates: end: 20040102

REACTIONS (5)
  - ARTERIAL THROMBOSIS LIMB [None]
  - BLOOD FIBRINOGEN INCREASED [None]
  - DRUG INTERACTION [None]
  - FIBRIN D DIMER INCREASED [None]
  - PLATELET COUNT INCREASED [None]
